FAERS Safety Report 9252608 (Version 1)
Quarter: 2013Q2

REPORT INFORMATION
  Report Type: Spontaneous
  Country: US (occurrence: US)
  Receive Date: 20130424
  Receipt Date: 20130424
  Transmission Date: 20140414
  Serious: No
  Sender: FDA-Public Use
  Company Number: US-ASTRAZENECA-2013SE24578

PATIENT
  Age: 47 Year
  Sex: Female
  Weight: 67.1 kg

DRUGS (4)
  1. NEXIUM [Suspect]
     Indication: GASTROOESOPHAGEAL REFLUX DISEASE
     Dosage: DAILY
     Route: 048
     Dates: start: 2011
  2. NEXIUM [Suspect]
     Indication: OESOPHAGEAL SPASM
     Dosage: DAILY
     Route: 048
     Dates: start: 2011
  3. NEXIUM [Suspect]
     Indication: GASTROOESOPHAGEAL REFLUX DISEASE
     Route: 048
  4. NEXIUM [Suspect]
     Indication: OESOPHAGEAL SPASM
     Route: 048

REACTIONS (3)
  - Joint stiffness [Unknown]
  - Joint laxity [Unknown]
  - Off label use [Unknown]
